FAERS Safety Report 13394443 (Version 1)
Quarter: 2017Q2

REPORT INFORMATION
  Report Type: Spontaneous
  Country: IT (occurrence: IT)
  Receive Date: 20170402
  Receipt Date: 20170402
  Transmission Date: 20170830
  Serious: Yes (Hospitalization)
  Sender: FDA-Public Use
  Company Number: IT-BRISTOL-MYERS SQUIBB COMPANY-BMS-2017-023858

PATIENT
  Age: 76 Year
  Sex: Female

DRUGS (1)
  1. COUMADIN [Suspect]
     Active Substance: WARFARIN SODIUM
     Indication: CEREBRAL ISCHAEMIA
     Dosage: DAILY
     Route: 048

REACTIONS (4)
  - Haematuria [Unknown]
  - International normalised ratio increased [Unknown]
  - Pelvic pain [Unknown]
  - Dysuria [Unknown]

NARRATIVE: CASE EVENT DATE: 20161018
